FAERS Safety Report 6890996-0 (Version None)
Quarter: 2010Q3

REPORT INFORMATION
  Report Type: 
  Country: None (occurrence: None)
  Receive Date: 20100731
  Receipt Date: 20090505
  Transmission Date: 20110219
  Serious: Yes (Other)
  Sender: FDA-Public Use
  Company Number: US-PFIZER INC-2009208855

PATIENT
  Sex: Male

DRUGS (6)
  1. LIPITOR [Suspect]
     Indication: BLOOD CHOLESTEROL
     Dosage: UNK MG, UNK
  2. LIPITOR [Suspect]
     Indication: BLOOD PRESSURE
  3. AVALIDE [Suspect]
     Indication: BLOOD PRESSURE
  4. AVALIDE [Suspect]
     Indication: BLOOD CHOLESTEROL
  5. ASPIRIN [Suspect]
     Indication: BLOOD PRESSURE
  6. ASPIRIN [Suspect]
     Indication: BLOOD CHOLESTEROL

REACTIONS (3)
  - BLOOD CREATINE PHOSPHOKINASE INCREASED [None]
  - PAIN [None]
  - SYNCOPE [None]
